FAERS Safety Report 5254433-4 (Version None)
Quarter: 2007Q1

REPORT INFORMATION
  Report Type: 
  Country: None (occurrence: None)
  Receive Date: 20061201
  Receipt Date: 20060912
  Transmission Date: 20070707
  Serious: Yes (Hospitalization)
  Sender: FDA-Public Use
  Company Number: 2006PV021080

PATIENT
  Age: 83 Year
  Sex: Female

DRUGS (3)
  1. BYETTA [Suspect]
     Indication: DIABETES MELLITUS NON-INSULIN-DEPENDENT
     Dosage: 5 MCG;BID;SC
     Route: 058
     Dates: start: 20060909, end: 20060910
  2. HUMALOG SLIDING SCALE [Concomitant]
  3. AMARYL [Concomitant]

REACTIONS (2)
  - DEHYDRATION [None]
  - HYPOGLYCAEMIA [None]
